FAERS Safety Report 4966589-9 (Version None)
Quarter: 2006Q2

REPORT INFORMATION
  Report Type: 
  Country: None (occurrence: None)
  Receive Date: 20060407
  Receipt Date: 20051129
  Transmission Date: 20061013
  Serious: Yes (Hospitalization)
  Sender: FDA-Public Use
  Company Number: JP-AVENTIS-200513594JP

PATIENT
  Age: 50 Year
  Sex: Male

DRUGS (3)
  1. ALLEGRA [Suspect]
     Indication: DERMATITIS CONTACT
     Route: 048
     Dates: start: 20051125, end: 20051126
  2. ASPIRIN [Suspect]
     Indication: DIZZINESS
     Dosage: DOSE: 100 MG
     Route: 048
     Dates: start: 20051127, end: 20051127
  3. GASTER [Suspect]
     Indication: DIZZINESS
     Dosage: DOSE: 20 MG
     Route: 048
     Dates: start: 20051127, end: 20051127

REACTIONS (6)
  - DIZZINESS [None]
  - GENERALISED ERYTHEMA [None]
  - PRURITUS [None]
  - RASH [None]
  - URTICARIA [None]
  - VESTIBULAR NEURONITIS [None]
